FAERS Safety Report 7185880-1 (Version None)
Quarter: 2010Q4

REPORT INFORMATION
  Report Type: 
  Country: None (occurrence: None)
  Receive Date: 20101222
  Receipt Date: 20101207
  Transmission Date: 20110411
  Serious: No
  Sender: FDA-Public Use
  Company Number: US-B.I. PHARMACEUTICALS,INC./RIDGEFIELD-2010-BP-11658BP

PATIENT
  Sex: Female

DRUGS (7)
  1. SPIRIVA [Suspect]
     Indication: CHRONIC OBSTRUCTIVE PULMONARY DISEASE
     Dosage: 18 MCG
     Route: 055
     Dates: start: 20060101
  2. SPIRIVA [Suspect]
     Indication: CHEST DISCOMFORT
  3. SPIRIVA [Suspect]
     Indication: DYSPNOEA
  4. VITAMIN D3 [Concomitant]
     Dosage: 2000 U
  5. PROVENTIL [Concomitant]
     Dosage: 180 MG
  6. CENTRUM SILVER MULTIVITAMIN [Concomitant]
     Indication: VITAMIN SUPPLEMENTATION
  7. FEXOFENADINE HCL [Concomitant]
     Dosage: 180 MG

REACTIONS (2)
  - CHEST DISCOMFORT [None]
  - DYSPNOEA [None]
